FAERS Safety Report 6988200-8 (Version None)
Quarter: 2010Q3

REPORT INFORMATION
  Report Type: 
  Country: None (occurrence: None)
  Receive Date: 20100916
  Receipt Date: 20100903
  Transmission Date: 20110219
  Serious: Yes (Hospitalization, Other)
  Sender: FDA-Public Use
  Company Number: DE-ROCHE-726805

PATIENT
  Sex: Female
  Weight: 68 kg

DRUGS (4)
  1. PEGINTERFERON ALFA-2A [Suspect]
     Route: 058
     Dates: start: 20100122
  2. RIBAVIRIN [Suspect]
     Route: 065
     Dates: start: 20100122
  3. PANTOPRAZOLE SODIUM [Concomitant]
     Dates: start: 20080710
  4. NOVALGIN [Concomitant]

REACTIONS (2)
  - ABDOMINAL DISCOMFORT [None]
  - ENTEROCOLITIS INFECTIOUS [None]
